FAERS Safety Report 23432071 (Version 1)
Quarter: 2024Q1

REPORT INFORMATION
  Report Type: Spontaneous
  Country: US (occurrence: None)
  Receive Date: 20240122
  Receipt Date: 20240122
  Transmission Date: 20240410
  Serious: No
  Sender: FDA-Public Use
  Company Number: None

PATIENT
  Age: 31 Year
  Sex: Female

DRUGS (2)
  1. HUMALOG [Suspect]
     Active Substance: INSULIN LISPRO
     Indication: Gestational diabetes
  2. HUMALOG [Suspect]
     Active Substance: INSULIN LISPRO
     Indication: Third trimester pregnancy

REACTIONS (1)
  - Injection site rash [None]

NARRATIVE: CASE EVENT DATE: 20240122
